FAERS Safety Report 9678932 (Version 3)
Quarter: 2014Q1

REPORT INFORMATION
  Report Type: Spontaneous
  Country: JP (occurrence: JP)
  Receive Date: 20131108
  Receipt Date: 20140102
  Transmission Date: 20141002
  Serious: Yes (Hospitalization)
  Sender: FDA-Public Use
  Company Number: JP-PFIZER INC-2013311938

PATIENT
  Age: 51 Year
  Sex: Male

DRUGS (4)
  1. CADUET [Suspect]
     Indication: HYPERTENSION
     Dosage: 1 DF, 1X/DAY
     Route: 048
     Dates: start: 20110125, end: 20130922
  2. CADUET [Suspect]
     Indication: LIPID METABOLISM DISORDER
  3. TERNELIN [Concomitant]
     Indication: CERVICOBRACHIAL SYNDROME
     Dosage: 1 MG, 3X/DAY
     Route: 048
     Dates: start: 20120511
  4. LOXONIN [Concomitant]
     Indication: MUSCULOSKELETAL PAIN
     Dosage: 60-120MG, 1X OR 2X/DAY
     Route: 048
     Dates: start: 20120511

REACTIONS (1)
  - Rhabdomyolysis [Recovered/Resolved]
